FAERS Safety Report 6111269-X (Version None)
Quarter: 2009Q1

REPORT INFORMATION
  Report Type: 
  Country: None (occurrence: None)
  Receive Date: 20090309
  Receipt Date: 20090220
  Transmission Date: 20090719
  Serious: Yes (Hospitalization)
  Sender: FDA-Public Use
  Company Number: DSA_33291_2009

PATIENT
  Age: 75 Year
  Sex: Male

DRUGS (4)
  1. DILTIAZEM [Suspect]
     Indication: HYPERTENSION
     Dosage: (200 MG QD ORAL)
     Route: 048
  2. LASIX [Suspect]
     Indication: HYPERTENSION
     Dosage: (20 MG BID ORAL)
     Route: 048
  3. INIPOMP /01263201/ [Concomitant]
  4. SIMVASTATIN [Concomitant]

REACTIONS (5)
  - AGITATION [None]
  - C-REACTIVE PROTEIN INCREASED [None]
  - CONFUSIONAL STATE [None]
  - FALL [None]
  - TIBIA FRACTURE [None]
